FAERS Safety Report 6952861-X (Version None)
Quarter: 2010Q3

REPORT INFORMATION
  Report Type: 
  Country: None (occurrence: None)
  Receive Date: 20100829
  Receipt Date: 20100517
  Transmission Date: 20110219
  Serious: No
  Sender: FDA-Public Use
  Company Number: US-ABBOTT-10P-163-0646365-00

PATIENT
  Sex: Female
  Weight: 64.468 kg

DRUGS (6)
  1. NIASPAN [Suspect]
     Indication: BLOOD TRIGLYCERIDES INCREASED
     Dates: start: 20100516
  2. NIASPAN [Suspect]
     Indication: HIGH DENSITY LIPOPROTEIN DECREASED
  3. LIPITOR [Concomitant]
     Indication: BLOOD CHOLESTEROL INCREASED
  4. SYNTHROID [Concomitant]
     Indication: HYPOTHYROIDISM
  5. CYTAMEL [Concomitant]
     Indication: HYPOTHYROIDISM
  6. KLONOPIN [Concomitant]
     Indication: TREMOR

REACTIONS (4)
  - FEELING HOT [None]
  - FLUSHING [None]
  - PRURITUS [None]
  - RASH MACULAR [None]
